FAERS Safety Report 11729366 (Version 1)
Quarter: 2015Q4

REPORT INFORMATION
  Report Type: Spontaneous
  Country: US (occurrence: US)
  Receive Date: 20151110
  Receipt Date: 20151110
  Transmission Date: 20160304
  Serious: No
  Sender: FDA-Public Use
  Company Number: US-ELI_LILLY_AND_COMPANY-US201111006409

PATIENT
  Sex: Female

DRUGS (1)
  1. FORTEO [Suspect]
     Active Substance: TERIPARATIDE
     Indication: OSTEOPOROSIS
     Dosage: 20 UG, QD
     Route: 065
     Dates: start: 201108, end: 201111

REACTIONS (11)
  - Ear pain [Unknown]
  - Headache [Recovered/Resolved]
  - Pain in extremity [Unknown]
  - Pain in jaw [Unknown]
  - Hypokinesia [Unknown]
  - Pain [Unknown]
  - Musculoskeletal stiffness [Unknown]
  - Toothache [Unknown]
  - Crying [Unknown]
  - Discomfort [Unknown]
  - Arthralgia [Unknown]
